FAERS Safety Report 7588708-0 (Version None)
Quarter: 2011Q3

REPORT INFORMATION
  Report Type: 
  Country: None (occurrence: None)
  Receive Date: 20110705
  Receipt Date: 20110620
  Transmission Date: 20111222
  Serious: Yes (Hospitalization, Other)
  Sender: FDA-Public Use
  Company Number: US-BAYER-2011-023390

PATIENT
  Age: 17 Year
  Sex: Female
  Weight: 52.608 kg

DRUGS (11)
  1. TIZANIDINE HCL [Concomitant]
     Dosage: UNK
     Dates: start: 20070716, end: 20071031
  2. PANTANOL [Concomitant]
     Dosage: UNK
     Dates: start: 20070809, end: 20070917
  3. TRIAMCINOLONE [Concomitant]
     Dosage: UNK
     Dates: start: 20061107, end: 20070917
  4. DICLOFENAC SODIUM [Concomitant]
     Dosage: UNK
     Dates: start: 20061020, end: 20070917
  5. BACTROBAN [Concomitant]
     Dosage: UNK
     Dates: start: 20070320, end: 20070917
  6. URISED [Concomitant]
     Dosage: UNK
     Dates: start: 20070716, end: 20070917
  7. BENZACLIN [Concomitant]
     Dosage: UNK
     Dates: start: 20061220, end: 20090714
  8. ZYRTEC [Concomitant]
     Dosage: UNK
     Dates: start: 20020917, end: 20070917
  9. PREDNISONE [Concomitant]
     Dosage: UNK
     Dates: start: 20071012
  10. YAZ [Suspect]
     Indication: PRODUCT USED FOR UNKNOWN INDICATION
  11. HYOSCYAMINE [Concomitant]
     Dosage: UNK
     Dates: start: 20021011, end: 20080221

REACTIONS (3)
  - CHOLECYSTITIS [None]
  - CHOLECYSTECTOMY [None]
  - EMOTIONAL DISTRESS [None]
